FAERS Safety Report 7605628-3 (Version None)
Quarter: 2011Q3

REPORT INFORMATION
  Report Type: 
  Country: None (occurrence: None)
  Receive Date: 20110712
  Receipt Date: 20110712
  Transmission Date: 20111222
  Serious: Yes (Hospitalization)
  Sender: FDA-Public Use
  Company Number: None

PATIENT
  Age: 48 Year
  Sex: Male
  Weight: 102.9 kg

DRUGS (2)
  1. CLONAZEPAM [Suspect]
     Indication: ANXIETY
     Dosage: 1 MG BID PO
     Route: 048
     Dates: start: 20100507, end: 20110629
  2. OXYCODONE HCL [Suspect]
     Indication: PAIN
     Dosage: 5 MG QID PO
     Route: 048
     Dates: start: 20001023, end: 20110629

REACTIONS (2)
  - MENTAL STATUS CHANGES [None]
  - CONFUSIONAL STATE [None]
